FAERS Safety Report 22742680 (Version 3)
Quarter: 2025Q1

REPORT INFORMATION
  Report Type: Report from Study
  Country: DE (occurrence: DE)
  Receive Date: 20230724
  Receipt Date: 20250328
  Transmission Date: 20250409
  Serious: Yes (Hospitalization, Other)
  Sender: ROCHE
  Company Number: DE-ROCHE-2976777

PATIENT
  Age: 39 Year
  Sex: Female
  Weight: 54.0 kg

DRUGS (9)
  1. OCREVUS [Suspect]
     Active Substance: OCRELIZUMAB
     Indication: Relapsing-remitting multiple sclerosis
     Dosage: FOLLOWED BY 600 MG EVERY 180 DAYS.
     Route: 042
     Dates: start: 20211206
  2. OCREVUS [Suspect]
     Active Substance: OCRELIZUMAB
     Route: 042
     Dates: start: 20211206
  3. AMITRIPTYLINE [Concomitant]
     Active Substance: AMITRIPTYLINE
  4. ASPIRIN [Concomitant]
     Active Substance: ASPIRIN
  5. SOLIFENACIN [Concomitant]
     Active Substance: SOLIFENACIN
  6. NABIXIMOLS [Concomitant]
     Active Substance: NABIXIMOLS
     Dosage: FREQUENCY TEXT:2-0-2
  7. ATORVASTATIN [Concomitant]
     Active Substance: ATORVASTATIN
  8. ESTRADIOL [Concomitant]
     Active Substance: ESTRADIOL
  9. CARBAMAZEPINE [Concomitant]
     Active Substance: CARBAMAZEPINE

REACTIONS (30)
  - Nausea [Recovered/Resolved]
  - Hyperhidrosis [Recovered/Resolved]
  - Dyspnoea [Not Recovered/Not Resolved]
  - Limb discomfort [Not Recovered/Not Resolved]
  - Hypertension [Recovered/Resolved]
  - Heart rate increased [Recovered/Resolved]
  - Insomnia [Recovered/Resolved]
  - Alopecia [Recovering/Resolving]
  - Myositis [Recovered/Resolved]
  - Pain in extremity [Recovering/Resolving]
  - Weight increased [Recovering/Resolving]
  - Burning sensation [Not Recovered/Not Resolved]
  - Joint stiffness [Recovered/Resolved]
  - Muscle spasms [Recovered/Resolved]
  - Fatigue [Not Recovered/Not Resolved]
  - Pericardial effusion [Recovered/Resolved]
  - Pericarditis [Recovered/Resolved]
  - Diplopia [Not Recovered/Not Resolved]
  - Optic atrophy [Not Recovered/Not Resolved]
  - Headache [Recovered/Resolved]
  - Cerebral atrophy [Not Recovered/Not Resolved]
  - Neoplasm of thymus [Recovered/Resolved]
  - Dizziness [Recovered/Resolved]
  - Nausea [Recovered/Resolved]
  - Incorrect dose administered [Unknown]
  - Bone neoplasm [Recovered/Resolved]
  - Pain in jaw [Not Recovered/Not Resolved]
  - Dyspepsia [Recovered/Resolved]
  - Neurogenic bladder [Not Recovered/Not Resolved]
  - Rectal haemorrhage [Recovered/Resolved]

NARRATIVE: CASE EVENT DATE: 20211206
